FAERS Safety Report 8072255-6 (Version None)
Quarter: 2012Q1

REPORT INFORMATION
  Report Type: 
  Country: None (occurrence: None)
  Receive Date: 20120126
  Receipt Date: 20120123
  Transmission Date: 20120608
  Serious: No
  Sender: FDA-Public Use
  Company Number: US-PFIZER INC-2012018719

PATIENT
  Sex: Female
  Weight: 66.667 kg

DRUGS (4)
  1. CHANTIX [Suspect]
     Indication: SMOKING CESSATION THERAPY
     Dosage: 0.5 MG, 1X/DAY
     Route: 048
     Dates: start: 20111102
  2. OMEPRAZOLE [Concomitant]
     Dosage: UNK, 1X/DAY
  3. CHANTIX [Suspect]
     Dosage: 0.5 MG, 2X/DAY
     Route: 048
     Dates: end: 20120101
  4. INDOMETHACIN [Concomitant]
     Dosage: UNK, 1X/DAY

REACTIONS (2)
  - DIZZINESS [None]
  - ABNORMAL DREAMS [None]
